FAERS Safety Report 11782129 (Version 1)
Quarter: 2015Q4

REPORT INFORMATION
  Report Type: Report from Study
  Country: US (occurrence: US)
  Receive Date: 20151127
  Receipt Date: 20151127
  Transmission Date: 20160305
  Serious: Yes (Other)
  Sender: FDA-Public Use
  Company Number: US-ROCHE-1666865

PATIENT
  Age: 45 Year

DRUGS (4)
  1. CISPLATIN. [Suspect]
     Active Substance: CISPLATIN
     Indication: NON-SMALL CELL LUNG CANCER
     Dosage: OVER 60 MIN ON DAY 1
     Route: 042
     Dates: end: 20090827
  2. BEVACIZUMAB [Suspect]
     Active Substance: BEVACIZUMAB
     Indication: NON-SMALL CELL LUNG CANCER
     Dosage: OVER 30-90 MIN ON DAY 1
     Route: 042
     Dates: end: 20090827
  3. BEVACIZUMAB [Suspect]
     Active Substance: BEVACIZUMAB
     Dosage: AFTER 4 CYCLES OVER 30-90 MIN ON DAY 1Q 3 WKS, FOR UP TO 1 YEAR. LAST DOSE PRIOR TO SAE ON 18/NOV/20
     Route: 042
  4. PEMETREXED [Suspect]
     Active Substance: PEMETREXED
     Indication: NON-SMALL CELL LUNG CANCER
     Dosage: OVER 10 MIN ON DAY 1
     Route: 042
     Dates: end: 20090827

REACTIONS (1)
  - Pancreatitis [Recovered/Resolved]

NARRATIVE: CASE EVENT DATE: 20091119
